FAERS Safety Report 10164554 (Version 1)
Quarter: 2014Q2

REPORT INFORMATION
  Report Type: Spontaneous
  Country: US (occurrence: US)
  Receive Date: 20140510
  Receipt Date: 20140510
  Transmission Date: 20141212
  Serious: No
  Sender: FDA-Public Use
  Company Number: US-BRISTOL-MYERS SQUIBB COMPANY-19545003

PATIENT
  Age: 71 Year
  Sex: Female
  Weight: 72.56 kg

DRUGS (4)
  1. BYDUREON [Suspect]
     Indication: TYPE 2 DIABETES MELLITUS
     Dates: start: 20131007
  2. METFORMIN HCL [Suspect]
     Dosage: 1DF:100 UNIT NOS
  3. JANUVIA [Suspect]
     Dosage: 1DF:1 UNIT NOS
  4. PREMARIN [Concomitant]
     Dosage: 1DF:2 PILLS

REACTIONS (1)
  - Blood glucose increased [Unknown]
